FAERS Safety Report 19145407 (Version 3)
Quarter: 2024Q1

REPORT INFORMATION
  Report Type: Spontaneous
  Country: SE (occurrence: SE)
  Receive Date: 20210416
  Receipt Date: 20240328
  Transmission Date: 20240409
  Serious: Yes (Other)
  Sender: FDA-Public Use
  Company Number: SE-CELLTRION INC.-2021SE004889

PATIENT

DRUGS (3)
  1. RITUXIMAB [Suspect]
     Active Substance: RITUXIMAB
     Indication: Product used for unknown indication
     Dosage: (PHARMACEUTICAL DOSE FORM: UNKNOWN)
     Route: 065
     Dates: start: 202003
  2. TECFIDERA [Suspect]
     Active Substance: DIMETHYL FUMARATE
     Indication: Product used for unknown indication
     Dosage: 120 MG, PER 0.5 DAY PROLONGED-RELEASE CAPSULE
     Route: 065
  3. TECFIDERA [Suspect]
     Active Substance: DIMETHYL FUMARATE
     Dosage: 240 MG, PER 0.5 DAY (DOSE FORM: CAPSULE, SUSTAINED RELEASE)
     Route: 065
     Dates: start: 20130415

REACTIONS (11)
  - Multiple sclerosis [Unknown]
  - Gastritis [Unknown]
  - B-lymphocyte count decreased [Unknown]
  - Lymphopenia [Unknown]
  - Flushing [Unknown]
  - Pain [Unknown]
  - Rash erythematous [Unknown]
  - Pruritus [Unknown]
  - Rash erythematous [Unknown]
  - Abdominal pain upper [Unknown]
  - Rash pruritic [Unknown]

NARRATIVE: CASE EVENT DATE: 20130415
